FAERS Safety Report 7209386-6 (Version None)
Quarter: 2011Q1

REPORT INFORMATION
  Report Type: 
  Country: None (occurrence: None)
  Receive Date: 20110104
  Receipt Date: 20101224
  Transmission Date: 20110831
  Serious: Yes (Other)
  Sender: FDA-Public Use
  Company Number: GB-US-EMD SERONO, INC.-7032671

PATIENT
  Age: 37 Year
  Sex: Female

DRUGS (2)
  1. GONAL-F [Suspect]
     Indication: SUPEROVULATION
  2. OVITRELLE [Suspect]
     Indication: SUPEROVULATION
     Dates: start: 20101022, end: 20101027

REACTIONS (6)
  - HAEMORRHAGIC OVARIAN CYST [None]
  - HEADACHE [None]
  - DRUG ADMINISTRATION ERROR [None]
  - MALAISE [None]
  - INCORRECT DRUG ADMINISTRATION DURATION [None]
  - ABDOMINAL PAIN [None]
